FAERS Safety Report 8281696-3 (Version None)
Quarter: 2012Q2

REPORT INFORMATION
  Report Type: 
  Country: None (occurrence: None)
  Receive Date: 20120413
  Receipt Date: 20120404
  Transmission Date: 20120825
  Serious: No
  Sender: FDA-Public Use
  Company Number: US-JNJFOC-20120301704

PATIENT
  Sex: Female

DRUGS (4)
  1. FENTANYL-100 [Suspect]
     Indication: BACK PAIN
     Route: 062
  2. FENTANYL-100 [Suspect]
     Route: 062
     Dates: start: 20120201
  3. CLONAZEPAM [Concomitant]
     Indication: ANXIETY
     Route: 048
     Dates: start: 19970101
  4. FENTANYL-100 [Suspect]
     Route: 062
     Dates: start: 20120101, end: 20120201

REACTIONS (10)
  - DRUG INEFFECTIVE [None]
  - CONSTIPATION [None]
  - INAPPROPRIATE SCHEDULE OF DRUG ADMINISTRATION [None]
  - WITHDRAWAL SYNDROME [None]
  - THERAPEUTIC RESPONSE INCREASED [None]
  - NAUSEA [None]
  - DIZZINESS [None]
  - ASTHENIA [None]
  - CONFUSIONAL STATE [None]
  - RENAL IMPAIRMENT [None]
